FAERS Safety Report 6381352-2 (Version None)
Quarter: 2009Q4

REPORT INFORMATION
  Report Type: 
  Country: None (occurrence: None)
  Receive Date: 20090923
  Receipt Date: 20090910
  Transmission Date: 20100525
  Serious: Yes (Death)
  Sender: FDA-Public Use
  Company Number: 2009AL006052

PATIENT
  Age: 41 Year
  Sex: Male

DRUGS (5)
  1. CLONAZEPAM [Suspect]
     Dosage: PO
     Route: 048
     Dates: start: 20031230
  2. CHLORPROMAZINE HCL [Suspect]
  3. ZOPICLONE [Concomitant]
  4. CLOZARIL [Concomitant]
  5. PROCYCLIDINE HYDROCHLORIDE 2MG TAB [Concomitant]

REACTIONS (10)
  - ANTIPSYCHOTIC DRUG LEVEL ABOVE THERAPEUTIC [None]
  - CARDIO-RESPIRATORY ARREST [None]
  - CARDITIS [None]
  - DEHYDRATION [None]
  - DIARRHOEA [None]
  - DRUG INTERACTION [None]
  - HYPOVOLAEMIA [None]
  - MYOCARDITIS [None]
  - ORTHOSTATIC HYPOTENSION [None]
  - RENAL IMPAIRMENT [None]
